FAERS Safety Report 16002876 (Version 1)
Quarter: 2019Q1

REPORT INFORMATION
  Report Type: Spontaneous
  Country: US (occurrence: US)
  Receive Date: 20190225
  Receipt Date: 20190225
  Transmission Date: 20190418
  Serious: No
  Sender: FDA-Public Use
  Company Number: US-SA-2019SA047064

PATIENT
  Age: 53 Year
  Sex: Female

DRUGS (10)
  1. BACLOFEN. [Concomitant]
     Active Substance: BACLOFEN
  2. CARVEDILOL. [Concomitant]
     Active Substance: CARVEDILOL
  3. AUBAGIO [Suspect]
     Active Substance: TERIFLUNOMIDE
     Indication: MULTIPLE SCLEROSIS
     Dosage: 14 MG, QD
     Route: 048
     Dates: start: 20190126
  4. COUMADIN [Concomitant]
     Active Substance: WARFARIN SODIUM
  5. SYNTHROID [Concomitant]
     Active Substance: LEVOTHYROXINE SODIUM
  6. DIGOXIN. [Concomitant]
     Active Substance: DIGOXIN
  7. SPIRONOLACTONE. [Concomitant]
     Active Substance: SPIRONOLACTONE
  8. LASIX [Concomitant]
     Active Substance: FUROSEMIDE
  9. ENALAPRIL [Concomitant]
     Active Substance: ENALAPRIL
  10. GABAPENTIN. [Concomitant]
     Active Substance: GABAPENTIN

REACTIONS (4)
  - Chest discomfort [Unknown]
  - Depression [Unknown]
  - Abdominal discomfort [Unknown]
  - Hypotension [Unknown]

NARRATIVE: CASE EVENT DATE: 201901
